FAERS Safety Report 5997093-7 (Version None)
Quarter: 2008Q4

REPORT INFORMATION
  Report Type: 
  Country: None (occurrence: None)
  Receive Date: 20081212
  Receipt Date: 20081104
  Transmission Date: 20090506
  Serious: No
  Sender: FDA-Public Use
  Company Number: US-ABBOTT-08P-163-0485389-00

PATIENT
  Sex: Male
  Weight: 78.088 kg

DRUGS (2)
  1. HUMIRA [Suspect]
     Indication: BEHCET'S SYNDROME
     Route: 050
     Dates: start: 20060101
  2. SERTRALINE [Concomitant]
     Indication: ANXIETY
     Route: 048

REACTIONS (2)
  - DRUG INEFFECTIVE [None]
  - INCORRECT DOSE ADMINISTERED [None]
